FAERS Safety Report 16420272 (Version 1)
Quarter: 2019Q2

REPORT INFORMATION
  Report Type: Spontaneous
  Country: US (occurrence: US)
  Receive Date: 20190612
  Receipt Date: 20190612
  Transmission Date: 20190711
  Serious: No
  Sender: FDA-Public Use
  Company Number: US-PFIZER INC-2019247020

PATIENT
  Sex: Male

DRUGS (1)
  1. TESTOSTERONE CIPIONATE [Suspect]
     Active Substance: TESTOSTERONE
     Dosage: 150 MG, WEEKLY
     Route: 030

REACTIONS (3)
  - Product use complaint [Unknown]
  - Injection site mass [Unknown]
  - Acne [Unknown]
